FAERS Safety Report 4372881-1 (Version None)
Quarter: 2004Q2

REPORT INFORMATION
  Report Type: 
  Country: None (occurrence: None)
  Receive Date: 20040603
  Receipt Date: 20040514
  Transmission Date: 20050107
  Serious: No
  Sender: FDA-Public Use
  Company Number: A04200400457

PATIENT
  Age: 44 Year
  Sex: Male

DRUGS (1)
  1. ELOXATIN [Suspect]
     Dosage: INTRAVENOUS DRIP
     Route: 041
     Dates: start: 20040513, end: 20050513

REACTIONS (1)
  - BLINDNESS TRANSIENT [None]
